FAERS Safety Report 25510149 (Version 1)
Quarter: 2025Q3

REPORT INFORMATION
  Report Type: Spontaneous
  Country: US (occurrence: None)
  Receive Date: 20250702
  Receipt Date: 20250702
  Transmission Date: 20251021
  Serious: Yes (Congenital Anomaly)
  Sender: FDA-CTU
  Company Number: None

PATIENT

DRUGS (1)
  1. ZOLOFT [Suspect]
     Active Substance: SERTRALINE HYDROCHLORIDE
     Indication: Product used for unknown indication

REACTIONS (13)
  - Foetal exposure during pregnancy [None]
  - Withdrawal syndrome [None]
  - Nervous system disorder [None]
  - Feeding disorder [None]
  - Dehydration [None]
  - General physical health deterioration [None]
  - Drug dependence [None]
  - Deformity [None]
  - Developmental delay [None]
  - Learning disability [None]
  - Language disorder [None]
  - Cognitive disorder [None]
  - Educational problem [None]
